FAERS Safety Report 5605597-1 (Version None)
Quarter: 2008Q1

REPORT INFORMATION
  Report Type: 
  Country: None (occurrence: None)
  Receive Date: 20080125
  Receipt Date: 20080125
  Transmission Date: 20080703
  Serious: Yes (Hospitalization)
  Sender: FDA-Public Use
  Company Number: None

PATIENT
  Age: 64 Year
  Sex: Male
  Weight: 72.5755 kg

DRUGS (2)
  1. XANAX [Suspect]
     Indication: ANXIETY
     Dosage: .25 MG  4 DAILY  PO
     Route: 048
     Dates: start: 20031015, end: 20061015
  2. ATIVAN [Suspect]
     Indication: ANXIETY
     Dosage: .1MG  4 DAILY  PO
     Route: 048
     Dates: start: 20070315, end: 20071220

REACTIONS (4)
  - DIZZINESS [None]
  - FEELING ABNORMAL [None]
  - INSOMNIA [None]
  - NAUSEA [None]
